FAERS Safety Report 18463245 (Version 1)
Quarter: 2020Q4

REPORT INFORMATION
  Report Type: Spontaneous
  Country: US (occurrence: US)
  Receive Date: 20201104
  Receipt Date: 20201104
  Transmission Date: 20210114
  Serious: Yes (Disabling)
  Sender: FDA-Public Use
  Company Number: None

PATIENT
  Age: 37 Year
  Sex: Male
  Weight: 74.25 kg

DRUGS (2)
  1. KLONOPIN [Suspect]
     Active Substance: CLONAZEPAM
     Indication: ANXIETY
     Route: 048
     Dates: start: 20170101, end: 20171018
  2. ZYPREXA [Concomitant]
     Active Substance: OLANZAPINE

REACTIONS (11)
  - Depersonalisation/derealisation disorder [None]
  - Drug withdrawal syndrome [None]
  - Akathisia [None]
  - Depression [None]
  - Fear [None]
  - Enzyme level abnormal [None]
  - Anxiety [None]
  - Brain injury [None]
  - Mental disability [None]
  - Suicidal ideation [None]
  - Panic attack [None]

NARRATIVE: CASE EVENT DATE: 20170513
